FAERS Safety Report 23479966 (Version 2)
Quarter: 2025Q1

REPORT INFORMATION
  Report Type: Spontaneous
  Country: US (occurrence: US)
  Receive Date: 20240205
  Receipt Date: 20250227
  Transmission Date: 20250409
  Serious: No
  Sender: UCB
  Company Number: US-UCBSA-2023050198

PATIENT
  Sex: Female
  Weight: 48.5 kg

DRUGS (1)
  1. KEPPRA [Suspect]
     Active Substance: LEVETIRACETAM
     Indication: Seizure
     Dosage: 500 MILLIGRAM, 2X/DAY (BID)
     Dates: end: 2020

REACTIONS (3)
  - Mood altered [Unknown]
  - Anger [Unknown]
  - Insomnia [Unknown]
